FAERS Safety Report 20000342 (Version 2)
Quarter: 2021Q4

REPORT INFORMATION
  Report Type: Spontaneous
  Country: IL (occurrence: None)
  Receive Date: 20211027
  Receipt Date: 20211108
  Transmission Date: 20220303
  Serious: Yes (Other)
  Sender: FDA-Public Use
  Company Number: IL-ROCHE-2939235

PATIENT
  Age: 58 Year
  Sex: Female

DRUGS (4)
  1. HERCEPTIN [Suspect]
     Active Substance: TRASTUZUMAB
     Indication: Breast cancer
     Route: 065
     Dates: end: 201701
  2. CARBOPLATIN [Concomitant]
     Active Substance: CARBOPLATIN
     Dates: start: 202008
  3. ALIMTA [Concomitant]
     Active Substance: PEMETREXED DISODIUM
     Dates: start: 202008
  4. KEYTRUDA [Concomitant]
     Active Substance: PEMBROLIZUMAB
     Dates: start: 202008

REACTIONS (4)
  - Myocardial injury [Unknown]
  - Lung neoplasm malignant [Unknown]
  - Adenocarcinoma [Unknown]
  - Haemoptysis [Unknown]
